FAERS Safety Report 6138927-5 (Version None)
Quarter: 2009Q1

REPORT INFORMATION
  Report Type: 
  Country: None (occurrence: None)
  Receive Date: 20090331
  Receipt Date: 20090323
  Transmission Date: 20090719
  Serious: Yes (Hospitalization)
  Sender: FDA-Public Use
  Company Number: JP-B.I. PHARMACEUTICALS,INC./RIDGEFIELD-2009-DE-02466GD

PATIENT
  Sex: Female

DRUGS (8)
  1. MICARDIS [Suspect]
     Dosage: 40MG
     Route: 048
  2. DAONIL [Suspect]
     Dosage: 2.5MG
  3. ACTOS [Suspect]
     Dosage: 30MG
  4. MELBIN [Suspect]
     Route: 048
  5. AMARYL [Suspect]
     Dosage: 3MG
     Route: 048
  6. BASEN [Suspect]
     Dosage: .3MG
     Route: 048
  7. AMLODIPINE [Suspect]
     Dosage: 5MG
     Route: 048
  8. OLMETEC [Suspect]
     Dosage: 10MG
     Route: 048

REACTIONS (2)
  - ALTERED STATE OF CONSCIOUSNESS [None]
  - HYPOGLYCAEMIA [None]
